FAERS Safety Report 21253976 (Version 1)
Quarter: 2022Q3

REPORT INFORMATION
  Report Type: Spontaneous
  Country: US (occurrence: None)
  Receive Date: 20220825
  Receipt Date: 20220825
  Transmission Date: 20221026
  Serious: Yes (Hospitalization)
  Sender: FDA-Public Use
  Company Number: 2022A290687

PATIENT
  Age: 746 Month
  Sex: Male
  Weight: 65.8 kg

DRUGS (3)
  1. BRILINTA [Suspect]
     Active Substance: TICAGRELOR
     Indication: Myocardial infarction
     Route: 048
     Dates: start: 202008
  2. BRILINTA [Suspect]
     Active Substance: TICAGRELOR
     Indication: Stent placement
     Route: 048
     Dates: start: 202008
  3. PRASUGREL [Concomitant]
     Active Substance: PRASUGREL
     Route: 065

REACTIONS (1)
  - Myocardial infarction [Recovered/Resolved]
